FAERS Safety Report 5428792-3 (Version None)
Quarter: 2007Q3

REPORT INFORMATION
  Report Type: 
  Country: None (occurrence: None)
  Receive Date: 20070829
  Receipt Date: 20060719
  Transmission Date: 20080115
  Serious: No
  Sender: FDA-Public Use
  Company Number: A0613384A

PATIENT
  Age: 35 Year
  Sex: Female

DRUGS (2)
  1. ZOVIRAX [Suspect]
     Indication: GENITAL HERPES
     Dosage: 5PCT UNKNOWN
     Route: 061
     Dates: end: 20060601
  2. VALTREX [Concomitant]

REACTIONS (2)
  - HYPOAESTHESIA [None]
  - PRURITUS [None]
